FAERS Safety Report 6807215-3 (Version None)
Quarter: 2010Q2

REPORT INFORMATION
  Report Type: 
  Country: None (occurrence: None)
  Receive Date: 20100629
  Receipt Date: 20080819
  Transmission Date: 20101027
  Serious: No
  Sender: FDA-Public Use
  Company Number: US-PFIZER INC-2008068907

PATIENT
  Sex: Male
  Weight: 60.9 kg

DRUGS (11)
  1. XANAX [Suspect]
     Indication: NERVOUSNESS
     Dates: start: 20060101
  2. XANAX [Suspect]
     Indication: ANXIETY
  3. ALPRAZOLAM [Suspect]
     Indication: NERVOUSNESS
  4. ALPRAZOLAM [Suspect]
     Indication: ANXIETY
  5. FUROSEMIDE [Concomitant]
     Indication: OSTEOPOROSIS
  6. LISINOPRIL [Concomitant]
     Indication: HYPERTENSION
  7. ATENOLOL [Concomitant]
     Indication: HYPERTENSION
  8. ATENOLOL [Concomitant]
     Indication: CARDIOVASCULAR EVENT PROPHYLAXIS
  9. NEXIUM [Concomitant]
     Indication: GASTROOESOPHAGEAL REFLUX DISEASE
  10. ACETYLSALICYLIC ACID [Concomitant]
     Indication: CARDIOVASCULAR EVENT PROPHYLAXIS
  11. IBUPROFEN [Concomitant]
     Indication: PAIN

REACTIONS (1)
  - DRUG INEFFECTIVE [None]
